FAERS Safety Report 17967852 (Version 1)
Quarter: 2020Q3

REPORT INFORMATION
  Report Type: Spontaneous
  Country: IN (occurrence: IN)
  Receive Date: 20200701
  Receipt Date: 20200701
  Transmission Date: 20201103
  Serious: Yes (Hospitalization, Other)
  Sender: FDA-Public Use
  Company Number: IN-BAUSCH-BL-2020-018392

PATIENT
  Age: 54 Year
  Sex: Male

DRUGS (1)
  1. DEXAMETHASONE. [Suspect]
     Active Substance: DEXAMETHASONE
     Indication: PRURITUS
     Dosage: MULTIPLE INTRAMUSCULAR INJECTIONS
     Route: 030

REACTIONS (1)
  - Acarodermatitis [Recovering/Resolving]
